FAERS Safety Report 8960405 (Version 2)
Quarter: 2012Q4

REPORT INFORMATION
  Report Type: 
  Country: JP (occurrence: JP)
  Receive Date: 20121211
  Receipt Date: 20121231
  Transmission Date: 20130627
  Serious: Yes (Other)
  Sender: FDA-Public Use
  Company Number: CHNY2012JP000690

PATIENT
  Sex: Female

DRUGS (1)
  1. PURSENNID [Suspect]
     Dosage: Unk, Unk
     Route: 048

REACTIONS (1)
  - Foreign body [Unknown]
